FAERS Safety Report 7993279-0 (Version None)
Quarter: 2011Q4

REPORT INFORMATION
  Report Type: 
  Country: None (occurrence: None)
  Receive Date: 20111219
  Receipt Date: 20110812
  Transmission Date: 20120403
  Serious: No
  Sender: FDA-Public Use
  Company Number: US-ASTRAZENECA-2011SE48680

PATIENT
  Age: 77 Year
  Sex: Male
  Weight: 83.9 kg

DRUGS (9)
  1. PLAVIX [Concomitant]
  2. FINASTERIDE [Concomitant]
  3. METHOTREXATE [Concomitant]
  4. LEXAPRIL [Concomitant]
  5. CRESTOR [Suspect]
     Route: 048
     Dates: start: 20100101
  6. BENAZEPRIL HYDROCHLORIDE [Concomitant]
  7. CRESTOR [Suspect]
     Indication: HYPERCHOLESTEROLAEMIA
     Route: 048
     Dates: end: 20100101
  8. AMLODIPINE [Concomitant]
  9. CARVEDILOL [Concomitant]

REACTIONS (4)
  - HEADACHE [None]
  - COORDINATION ABNORMAL [None]
  - MYALGIA [None]
  - MUSCULAR WEAKNESS [None]
